FAERS Safety Report 8192310-X (Version None)
Quarter: 2012Q1

REPORT INFORMATION
  Report Type: 
  Country: None (occurrence: None)
  Receive Date: 20120307
  Receipt Date: 20110912
  Transmission Date: 20120608
  Serious: Yes (Death)
  Sender: FDA-Public Use
  Company Number: PHHY2011NL115729

PATIENT
  Sex: Male

DRUGS (2)
  1. TOBI [Suspect]
     Dates: start: 20110725
  2. IPRAMOL [Concomitant]

REACTIONS (1)
  - DEATH [None]
